FAERS Safety Report 9360598 (Version 6)
Quarter: 2014Q3

REPORT INFORMATION
  Report Type: Spontaneous
  Country: US (occurrence: US)
  Receive Date: 20130621
  Receipt Date: 20140930
  Transmission Date: 20150326
  Serious: Yes (Life-Threatening, Hospitalization, Other)
  Sender: FDA-Public Use
  Company Number: US-BAYER-2013-073871

PATIENT
  Age: 24 Year
  Sex: Female
  Weight: 88 kg

DRUGS (1)
  1. MIRENA [Suspect]
     Active Substance: LEVONORGESTREL
     Indication: CONTRACEPTION
     Dosage: 20 MCG/24HR, CONT
     Route: 015
     Dates: start: 20091129, end: 20110616

REACTIONS (12)
  - General physical health deterioration [None]
  - Drug ineffective [None]
  - Infection [None]
  - Abdominal pain lower [None]
  - Amenorrhoea [None]
  - Uterine perforation [None]
  - Anhedonia [None]
  - Emotional distress [None]
  - Anxiety [None]
  - Pregnancy with contraceptive device [None]
  - Abdominal pain [None]
  - Injury [None]

NARRATIVE: CASE EVENT DATE: 20100928
